FAERS Safety Report 6496158-3 (Version None)
Quarter: 2009Q4

REPORT INFORMATION
  Report Type: 
  Country: None (occurrence: None)
  Receive Date: 20091214
  Receipt Date: 20091007
  Transmission Date: 20100525
  Serious: No
  Sender: FDA-Public Use
  Company Number: US-BRISTOL-MYERS SQUIBB COMPANY-14810147

PATIENT
  Age: 56 Year
  Sex: Female
  Weight: 52 kg

DRUGS (12)
  1. ABILIFY [Suspect]
     Indication: DEPRESSION
     Dosage: 1 DF = 1/2 TABS
     Route: 048
     Dates: start: 20091004
  2. SPORANOX [Concomitant]
  3. HORMONES [Concomitant]
     Dosage: BIOIDENTICAL HORMONES
  4. THYROID TAB [Concomitant]
  5. RISPERDAL [Concomitant]
  6. PROTEIN SUPPLEMENT [Concomitant]
     Dosage: POWDER
  7. MULTI-VITAMIN [Concomitant]
  8. CALCIUM [Concomitant]
  9. VITAMIN B COMPLEX CAP [Concomitant]
  10. MAGNESIUM [Concomitant]
  11. CHONDROITIN SULFATE + GLUCOSAMINE [Concomitant]
  12. LOVAZA [Concomitant]

REACTIONS (1)
  - DECREASED APPETITE [None]
